FAERS Safety Report 16311159 (Version 2)
Quarter: 2020Q4

REPORT INFORMATION
  Report Type: Spontaneous
  Country: US (occurrence: US)
  Receive Date: 20190514
  Receipt Date: 20201028
  Transmission Date: 20210113
  Serious: Yes (Other)
  Sender: FDA-Public Use
  Company Number: US-ASTRAZENECA-2019SE67426

PATIENT
  Sex: Female
  Weight: 81.6 kg

DRUGS (47)
  1. ATORVASTATIN [Concomitant]
     Active Substance: ATORVASTATIN
     Indication: POST 5-ALPHA-REDUCTASE INHIBITOR SYNDROME
     Dates: start: 20160412, end: 20161230
  2. ROLAIDS [Concomitant]
     Active Substance: CALCIUM CARBONATE\MAGNESIUM HYDROXIDE
  3. TUMS [Concomitant]
     Active Substance: CALCIUM CARBONATE
     Dates: start: 20130911
  4. ALPRAZOLAM. [Concomitant]
     Active Substance: ALPRAZOLAM
  5. COMBIVENT [Concomitant]
     Active Substance: ALBUTEROL SULFATE\IPRATROPIUM BROMIDE
  6. ZOLPIDEM TARTRATE. [Concomitant]
     Active Substance: ZOLPIDEM TARTRATE
  7. BENZONATATE. [Concomitant]
     Active Substance: BENZONATATE
  8. AVELOX [Concomitant]
     Active Substance: MOXIFLOXACIN HYDROCHLORIDE
  9. NEXIUM [Suspect]
     Active Substance: ESOMEPRAZOLE MAGNESIUM
     Indication: GASTROOESOPHAGEAL REFLUX DISEASE
     Route: 048
     Dates: start: 20080410, end: 20100715
  10. PRILOSEC [Suspect]
     Active Substance: OMEPRAZOLE MAGNESIUM
     Indication: GASTROOESOPHAGEAL REFLUX DISEASE
     Route: 048
     Dates: start: 200804, end: 201311
  11. HYDROCODONE BITARTRATE. [Concomitant]
     Active Substance: HYDROCODONE BITARTRATE
  12. HYDROCODONE [Concomitant]
     Active Substance: HYDROCODONE
  13. GLYBURIDE. [Concomitant]
     Active Substance: GLYBURIDE
  14. FLUCONAZOLE. [Concomitant]
     Active Substance: FLUCONAZOLE
  15. SYNTHROID [Concomitant]
     Active Substance: LEVOTHYROXINE SODIUM
  16. BUDEPRION [Concomitant]
     Active Substance: BUPROPION HYDROCHLORIDE
  17. AMOXICILLIN. [Concomitant]
     Active Substance: AMOXICILLIN
     Indication: ANTIBIOTIC THERAPY
     Dates: start: 20111012, end: 20170208
  18. IBUPROFEN. [Concomitant]
     Active Substance: IBUPROFEN
     Indication: BACK PAIN
     Dates: start: 20080619, end: 20121217
  19. MYLANTA [Concomitant]
     Active Substance: ALUMINUM HYDROXIDE\DIMETHICONE\MAGNESIUM HYDROXIDE
  20. CYCLOBENZAPRINE. [Concomitant]
     Active Substance: CYCLOBENZAPRINE
  21. BACLOFEN. [Concomitant]
     Active Substance: BACLOFEN
  22. PANTOPRAZOLE [Suspect]
     Active Substance: PANTOPRAZOLE
     Indication: GASTROOESOPHAGEAL REFLUX DISEASE
     Route: 065
     Dates: start: 20171128
  23. ACETAMINOPHEN. [Concomitant]
     Active Substance: ACETAMINOPHEN
     Indication: BACK PAIN
     Dates: start: 20150319, end: 20180510
  24. SINGULAIR [Concomitant]
     Active Substance: MONTELUKAST SODIUM
  25. PREMARIN [Concomitant]
     Active Substance: ESTROGENS, CONJUGATED
  26. NEXIUM [Suspect]
     Active Substance: ESOMEPRAZOLE MAGNESIUM
     Indication: GASTROOESOPHAGEAL REFLUX DISEASE
     Route: 048
     Dates: start: 200804, end: 201311
  27. TRIAMTERENE. [Concomitant]
     Active Substance: TRIAMTERENE
     Indication: DIURETIC THERAPY
     Dates: start: 20091201, end: 20180826
  28. VITAMIN D2 [Concomitant]
     Active Substance: ERGOCALCIFEROL
     Indication: VITAMIN SUPPLEMENTATION
     Dates: start: 20110602, end: 20170607
  29. FLUTICASONE PROPIONATE. [Concomitant]
     Active Substance: FLUTICASONE PROPIONATE
  30. AZITHROMYCIN ANHYDROUS. [Concomitant]
     Active Substance: AZITHROMYCIN ANHYDROUS
  31. GABAPENTIN. [Concomitant]
     Active Substance: GABAPENTIN
  32. LANSOPRAZOLE. [Suspect]
     Active Substance: LANSOPRAZOLE
     Indication: GASTROOESOPHAGEAL REFLUX DISEASE
     Route: 065
     Dates: start: 20100308, end: 20100408
  33. MOXIFLOXACIN. [Concomitant]
     Active Substance: MOXIFLOXACIN
     Indication: ANTIBIOTIC THERAPY
     Dates: start: 20150114, end: 20181004
  34. DOXYCYCLINE. [Concomitant]
     Active Substance: DOXYCYCLINE
     Indication: ANTIBIOTIC THERAPY
     Dates: start: 20120106
  35. AMBIEN [Concomitant]
     Active Substance: ZOLPIDEM TARTRATE
  36. GLYBURIDE-METFORMIN [Concomitant]
  37. MELOXICAM. [Concomitant]
     Active Substance: MELOXICAM
  38. JANUVIA [Concomitant]
     Active Substance: SITAGLIPTIN PHOSPHATE
  39. LYRICA [Concomitant]
     Active Substance: PREGABALIN
  40. PRILOSEC [Suspect]
     Active Substance: OMEPRAZOLE MAGNESIUM
     Indication: GASTROOESOPHAGEAL REFLUX DISEASE
     Dosage: GENERIC, 20 MG ONCE DAILY, 40 MG ONCE DAILY
     Route: 065
     Dates: start: 20070216, end: 20100308
  41. REQUIP [Concomitant]
     Active Substance: ROPINIROLE HYDROCHLORIDE
  42. NADOLOL. [Concomitant]
     Active Substance: NADOLOL
  43. METOCLOPRAMIDE. [Concomitant]
     Active Substance: METOCLOPRAMIDE
  44. ACTOS [Concomitant]
     Active Substance: PIOGLITAZONE HYDROCHLORIDE
  45. LISINOPRIL. [Concomitant]
     Active Substance: LISINOPRIL
  46. TUSSIONEX PENNKINETIC [Concomitant]
     Active Substance: CHLORPHENIRAMINE\HYDROCODONE
  47. CITALOPRAM [Concomitant]
     Active Substance: CITALOPRAM HYDROBROMIDE

REACTIONS (3)
  - Gastrooesophageal reflux disease [Not Recovered/Not Resolved]
  - Chronic kidney disease [Not Recovered/Not Resolved]
  - Acute kidney injury [Unknown]
